FAERS Safety Report 6200469-6 (Version None)
Quarter: 2009Q2

REPORT INFORMATION
  Report Type: 
  Country: None (occurrence: None)
  Receive Date: 20090522
  Receipt Date: 20090515
  Transmission Date: 20091009
  Serious: Yes (Other)
  Sender: FDA-Public Use
  Company Number: AU-ABBOTT-09P-008-0573803-00

PATIENT
  Sex: Male

DRUGS (5)
  1. EPILIM [Suspect]
     Indication: PETIT MAL EPILEPSY
  2. EPILIM [Suspect]
  3. EPILIM [Suspect]
  4. EPILIM [Suspect]
     Dosage: 300MG IN AM AND PM
     Dates: start: 20090101
  5. EPILIM [Suspect]
     Dosage: 400MG IN AM; 300MG IN PM

REACTIONS (2)
  - PETIT MAL EPILEPSY [None]
  - TREATMENT NONCOMPLIANCE [None]
